FAERS Safety Report 8250283-5 (Version None)
Quarter: 2012Q2

REPORT INFORMATION
  Report Type: 
  Country: None (occurrence: None)
  Receive Date: 20120402
  Receipt Date: 20120328
  Transmission Date: 20120825
  Serious: Yes (Hospitalization, Other)
  Sender: FDA-Public Use
  Company Number: US-AMGEN-USASP2011049607

PATIENT
  Age: 56 Year
  Sex: Female

DRUGS (4)
  1. METHOTREXATE [Concomitant]
     Indication: RHEUMATOID ARTHRITIS
     Dosage: 15 MG, QWK
     Route: 048
     Dates: start: 20050101
  2. ENBREL [Suspect]
     Dosage: UNK
  3. NAPROXEN [Concomitant]
     Indication: RHEUMATOID ARTHRITIS
     Dosage: 50 MG, UNK
     Route: 048
  4. ENBREL [Suspect]
     Indication: RHEUMATOID ARTHRITIS
     Dosage: 50 MG, QWK
     Route: 058
     Dates: start: 20110620, end: 20120102

REACTIONS (23)
  - PLEURISY [None]
  - DEPRESSION [None]
  - COUGH [None]
  - TACHYCARDIA [None]
  - FATIGUE [None]
  - STRESS [None]
  - PYREXIA [None]
  - WEIGHT INCREASED [None]
  - RHEUMATOID ARTHRITIS [None]
  - MALAISE [None]
  - HYPOTENSION [None]
  - LARYNGITIS [None]
  - CHEST PAIN [None]
  - SINUS CONGESTION [None]
  - RESPIRATORY TRACT INFECTION [None]
  - RHEUMATOID LUNG [None]
  - ORAL HERPES [None]
  - INJECTION SITE HAEMORRHAGE [None]
  - EPISTAXIS [None]
  - DIZZINESS [None]
  - APHTHOUS STOMATITIS [None]
  - INCREASED TENDENCY TO BRUISE [None]
  - NASOPHARYNGITIS [None]
